FAERS Safety Report 15096588 (Version 1)
Quarter: 2018Q3

REPORT INFORMATION
  Report Type: Spontaneous
  Country: JP (occurrence: JP)
  Receive Date: 20180702
  Receipt Date: 20180702
  Transmission Date: 20181010
  Serious: Yes (Hospitalization)
  Sender: FDA-Public Use
  Company Number: PHJP2018JP008891

PATIENT
  Age: 73 Year
  Sex: Male

DRUGS (2)
  1. ZALUTIA [Interacting]
     Active Substance: TADALAFIL
     Indication: PRODUCT USED FOR UNKNOWN INDICATION
     Dosage: UNK
     Route: 065
  2. GLIVEC [Suspect]
     Active Substance: IMATINIB MESYLATE
     Indication: CHRONIC MYELOID LEUKAEMIA
     Dosage: 300 MG, UNK
     Route: 048

REACTIONS (4)
  - Drug level increased [Unknown]
  - Decreased activity [Recovering/Resolving]
  - Concomitant disease aggravated [Recovering/Resolving]
  - Drug interaction [Unknown]
